FAERS Safety Report 12606637 (Version 4)
Quarter: 2016Q4

REPORT INFORMATION
  Report Type: Spontaneous
  Country: DE (occurrence: DE)
  Receive Date: 20160729
  Receipt Date: 20161114
  Transmission Date: 20170207
  Serious: Yes (Hospitalization, Other)
  Sender: FDA-Public Use
  Company Number: DE-ASTRAZENECA-2016SE80629

PATIENT
  Age: 16971 Day
  Sex: Female

DRUGS (5)
  1. LYNPARZA [Suspect]
     Active Substance: OLAPARIB
     Indication: OVARIAN CANCER
     Dosage: 8-0-8
     Route: 048
     Dates: start: 20160419, end: 20160718
  2. LYNPARZA [Suspect]
     Active Substance: OLAPARIB
     Indication: OVARIAN CANCER
     Dosage: 4-0-4
     Route: 048
     Dates: start: 20160822
  3. VITAMIN C [Concomitant]
     Active Substance: ASCORBIC ACID
  4. L THYROXIN [Concomitant]
     Active Substance: LEVOTHYROXINE SODIUM
     Indication: HYPOTHYROIDISM
     Dosage: 50 MCG 1-0-0
  5. L THYROXIN [Concomitant]
     Active Substance: LEVOTHYROXINE SODIUM
     Indication: HYPOTHYROIDISM
     Dosage: 75 MICROGRAM PER DAY

REACTIONS (8)
  - Pleural effusion [Unknown]
  - Hypokalaemia [Unknown]
  - Sepsis [Unknown]
  - Pneumonitis [Not Recovered/Not Resolved]
  - Anaemia [Unknown]
  - Pericardial effusion [Unknown]
  - Leukopenia [Unknown]
  - Pulmonary embolism [Not Recovered/Not Resolved]

NARRATIVE: CASE EVENT DATE: 20160720
